FAERS Safety Report 19607798 (Version 1)
Quarter: 2021Q3

REPORT INFORMATION
  Report Type: Spontaneous
  Country: PT (occurrence: ES)
  Receive Date: 20210726
  Receipt Date: 20210726
  Transmission Date: 20211014
  Serious: Yes (Other)
  Sender: FDA-Public Use
  Company Number: PT-ROCHE-2872190

PATIENT
  Age: 58 Year
  Sex: Female

DRUGS (4)
  1. CAPECITABINE. [Suspect]
     Active Substance: CAPECITABINE
     Indication: BREAST CANCER METASTATIC
     Route: 048
  2. TUCATINIB [Suspect]
     Active Substance: TUCATINIB
     Indication: BREAST CANCER METASTATIC
     Route: 065
  3. TUCATINIB [Suspect]
     Active Substance: TUCATINIB
     Dosage: 250 MG, BID
     Route: 065
  4. TRASTUZUMAB. [Suspect]
     Active Substance: TRASTUZUMAB
     Indication: BREAST CANCER METASTATIC
     Route: 065

REACTIONS (3)
  - Hyperbilirubinaemia [Unknown]
  - Stomatitis [Unknown]
  - Palmar-plantar erythrodysaesthesia syndrome [Unknown]
